FAERS Safety Report 15940188 (Version 2)
Quarter: 2019Q1

REPORT INFORMATION
  Report Type: Report from Study
  Country: FR (occurrence: FR)
  Receive Date: 20190208
  Receipt Date: 20190219
  Transmission Date: 20190417
  Serious: Yes (Hospitalization, Other)
  Sender: FDA-Public Use
  Company Number: FR-JNJFOC-20190207318

PATIENT

DRUGS (1)
  1. INFLIXIMAB, RECOMBINANT [Suspect]
     Active Substance: INFLIXIMAB
     Indication: CROHN^S DISEASE
     Route: 042
     Dates: start: 2015

REACTIONS (21)
  - Urinary tract infection [Unknown]
  - Upper respiratory tract infection [Unknown]
  - Skin infection [Unknown]
  - Infection [Unknown]
  - Cervix carcinoma [Unknown]
  - Drug ineffective [Unknown]
  - Skin cancer [Unknown]
  - Lymphoma [Unknown]
  - Toxicity to various agents [Unknown]
  - Colorectal cancer [Unknown]
  - Gastrointestinal infection [Unknown]
  - Uterine cancer [Unknown]
  - Tuberculosis [Unknown]
  - Malignant urinary tract neoplasm [Unknown]
  - Thyroid cancer [Unknown]
  - Clostridium difficile infection [Unknown]
  - Lung infection [Unknown]
  - Gastrointestinal carcinoma [Unknown]
  - Breast cancer [Unknown]
  - Lung neoplasm malignant [Unknown]
  - Haematological malignancy [Unknown]
